FAERS Safety Report 24173080 (Version 2)
Quarter: 2024Q3

REPORT INFORMATION
  Report Type: Spontaneous
  Country: US (occurrence: US)
  Receive Date: 20240805
  Receipt Date: 20240807
  Transmission Date: 20241016
  Serious: No
  Sender: ROCHE
  Company Number: US-ROCHE-10000047508

PATIENT
  Sex: Female

DRUGS (1)
  1. PHESGO [Suspect]
     Active Substance: HYALURONIDASE (HUMAN RECOMBINANT)\PERTUZUMAB\TRASTUZUMAB
     Indication: Product used for unknown indication
     Route: 065

REACTIONS (1)
  - Alopecia [Unknown]
